FAERS Safety Report 12849698 (Version 1)
Quarter: 2016Q4

REPORT INFORMATION
  Report Type: Spontaneous
  Country: US (occurrence: US)
  Receive Date: 20161014
  Receipt Date: 20161014
  Transmission Date: 20170207
  Serious: No
  Sender: FDA-Public Use
  Company Number: US-ROCHE-1797786

PATIENT
  Age: 88 Year
  Sex: Male

DRUGS (1)
  1. ESBRIET [Suspect]
     Active Substance: PIRFENIDONE
     Indication: PULMONARY FIBROSIS
     Dosage: 3 CAPSUL;ES THRICE DAILY
     Route: 048
     Dates: start: 20160208, end: 20160714

REACTIONS (1)
  - Rash [Unknown]

NARRATIVE: CASE EVENT DATE: 20160714
